FAERS Safety Report 7391688-4 (Version None)
Quarter: 2011Q2

REPORT INFORMATION
  Report Type: 
  Country: None (occurrence: None)
  Receive Date: 20110404
  Receipt Date: 20081001
  Transmission Date: 20111010
  Serious: Yes (Death, Hospitalization, Other)
  Sender: FDA-Public Use
  Company Number: US-BAYER-2011-005751

PATIENT
  Sex: Male
  Weight: 98 kg

DRUGS (18)
  1. METOPROLOL [Concomitant]
     Dosage: 25 MG, UNK
     Route: 048
  2. ACETYLSALICYLIC ACID SRT [Concomitant]
     Dosage: 81 MG, UNK
     Route: 048
  3. POTASSIUM CHLORIDE [Concomitant]
     Dosage: 20 MEQ, UNK
     Route: 042
     Dates: start: 20050128
  4. CORDARONE [Concomitant]
     Dosage: 200 MG, UNK
     Route: 048
  5. PRAVACHOL [Concomitant]
     Dosage: 20 MG, UNK
     Route: 048
  6. AMBIEN [Concomitant]
     Dosage: 5 MG, UNK
     Route: 048
  7. COUMADIN [Concomitant]
     Dosage: 2.5 MG, UNK
     Route: 048
  8. FENTANYL [Concomitant]
     Dosage: 150MCG
     Route: 042
     Dates: start: 20050128
  9. TRASYLOL [Suspect]
     Indication: CORONARY REVASCULARISATION
     Dosage: 200CC OVER 45 MINUTES THEN 50 ML/HOUR
     Dates: start: 20050128, end: 20050128
  10. VERSED [Concomitant]
     Dosage: 10 MG, UNK
     Route: 042
     Dates: start: 20050128
  11. NITROGLYCERIN [Concomitant]
     Dosage: 150MCG
     Route: 042
     Dates: start: 20050128
  12. TRASYLOL [Suspect]
     Indication: CORONARY ARTERY BYPASS
     Dosage: 1 ML, UNK
     Route: 042
     Dates: start: 20050128, end: 20050128
  13. TRASYLOL [Suspect]
     Indication: MITRAL VALVE REPAIR
     Dosage: PUMP PRIME 200 ML
     Dates: start: 20050128, end: 20050128
  14. BENAZEPRIL HYDROCHLORIDE [Concomitant]
     Dosage: 5 MG, UNK
     Route: 048
  15. ZAROXOLYN [Concomitant]
     Dosage: 2.5 MG, UNK
     Route: 048
  16. PROTONIX [Concomitant]
     Dosage: 40 MG, UNK
     Route: 048
  17. INSULIN HUMAN [Concomitant]
     Dosage: 45 U, UNK
     Route: 048
  18. LASIX [Concomitant]
     Dosage: 60 MG, UNK
     Route: 048

REACTIONS (7)
  - ANXIETY [None]
  - INJURY [None]
  - SEPTIC SHOCK [None]
  - RENAL FAILURE [None]
  - EMOTIONAL DISTRESS [None]
  - CHOLECYSTITIS ACUTE [None]
  - PAIN [None]
